FAERS Safety Report 6100267-8 (Version None)
Quarter: 2009Q1

REPORT INFORMATION
  Report Type: 
  Country: None (occurrence: None)
  Receive Date: 20090303
  Receipt Date: 20090219
  Transmission Date: 20090719
  Serious: Yes (Other)
  Sender: FDA-Public Use
  Company Number: US-PFIZER INC-2009174979

PATIENT
  Sex: Male
  Weight: 113.38 kg

DRUGS (3)
  1. DETROL LA [Suspect]
     Indication: MICTURITION DISORDER
     Dosage: UNK
     Route: 048
  2. VALSARTAN [Concomitant]
     Dosage: UNK
  3. LIPITOR [Concomitant]
     Dosage: UNK

REACTIONS (1)
  - EYE DISORDER [None]
